FAERS Safety Report 24385064 (Version 1)
Quarter: 2024Q3

REPORT INFORMATION
  Report Type: Spontaneous
  Country: US (occurrence: None)
  Receive Date: 20240929
  Receipt Date: 20240929
  Transmission Date: 20241017
  Serious: Yes (unspecified)
  Sender: Public
  Company Number: None

PATIENT

DRUGS (2)
  1. NIKKI [Suspect]
     Active Substance: DROSPIRENONE\ETHINYL ESTRADIOL
  2. COSMETICS [Suspect]
     Active Substance: COSMETICS

REACTIONS (1)
  - Erythema [None]

NARRATIVE: CASE EVENT DATE: 20240927
